FAERS Safety Report 25873343 (Version 1)
Quarter: 2025Q4

REPORT INFORMATION
  Report Type: Spontaneous
  Country: US (occurrence: None)
  Receive Date: 20251001
  Receipt Date: 20251001
  Transmission Date: 20260117
  Serious: No
  Sender: FDA-CTU
  Company Number: None

PATIENT
  Sex: Male

DRUGS (2)
  1. TERIPARATIDE [Suspect]
     Active Substance: TERIPARATIDE
     Indication: Osteoporosis
     Dosage: FREQUENCY : DAILY;?
     Route: 058
     Dates: start: 20250523
  2. NULOJIX [Concomitant]
     Active Substance: BELATACEPT

REACTIONS (1)
  - Pyrexia [None]
